FAERS Safety Report 5370208-X (Version None)
Quarter: 2007Q2

REPORT INFORMATION
  Report Type: 
  Country: None (occurrence: None)
  Receive Date: 20070626
  Receipt Date: 20070621
  Transmission Date: 20071010
  Serious: Yes (Other)
  Sender: FDA-Public Use
  Company Number: US-ASTRAZENECA-2007UW12642

PATIENT
  Age: 65 Year
  Sex: Female
  Weight: 72.6 kg

DRUGS (7)
  1. NEXIUM [Suspect]
     Indication: GASTROOESOPHAGEAL REFLUX DISEASE
     Route: 048
     Dates: start: 20060101, end: 20060101
  2. NEXIUM [Suspect]
     Route: 048
     Dates: start: 20070101, end: 20070522
  3. DILANTIN [Concomitant]
  4. LEXAPRO [Concomitant]
  5. FLAGYL [Concomitant]
     Dates: start: 20060101, end: 20060101
  6. ALBUTEROL [Concomitant]
     Indication: WHEEZING
     Dates: start: 20040101, end: 20040101
  7. EVISTA [Concomitant]
     Indication: BONE DENSITY DECREASED
     Dates: start: 19960101, end: 20040101

REACTIONS (4)
  - CONVULSION [None]
  - HEADACHE [None]
  - PRURITUS [None]
  - URTICARIA [None]
